FAERS Safety Report 4634346-9 (Version None)
Quarter: 2005Q2

REPORT INFORMATION
  Report Type: 
  Country: None (occurrence: None)
  Receive Date: 20050411
  Receipt Date: 20050328
  Transmission Date: 20051028
  Serious: Yes (Hospitalization)
  Sender: FDA-Public Use
  Company Number: 2005050610

PATIENT
  Age: 35 Year
  Sex: Female

DRUGS (3)
  1. SOLU-MEDROL [Suspect]
     Indication: URTICARIA
     Dosage: INTRAVENOUS
     Route: 042
  2. DEXCHLORPHENIRAMINE MALEATE [Suspect]
     Indication: URTICARIA
     Dosage: INTRAVENOUS
     Route: 042
  3. ANTIDEPRESSANTS (ANTIDEPRESSANTS) [Concomitant]

REACTIONS (3)
  - COORDINATION ABNORMAL [None]
  - DEPRESSED LEVEL OF CONSCIOUSNESS [None]
  - EXTENSOR PLANTAR RESPONSE [None]
